FAERS Safety Report 7265564-1 (Version None)
Quarter: 2011Q1

REPORT INFORMATION
  Report Type: 
  Country: None (occurrence: None)
  Receive Date: 20110131
  Receipt Date: 20110120
  Transmission Date: 20110831
  Serious: Yes (Congenital Anomaly)
  Sender: FDA-Public Use
  Company Number: FR-ROCHE-755118

PATIENT
  Sex: Female

DRUGS (7)
  1. DELURSAN [Suspect]
     Dosage: 200 MH 4 TIMES DAILY
     Dates: end: 20090515
  2. ASPEGIC 250 [Suspect]
     Dosage: STARTED BEFORE PREGNANCY.
     Dates: end: 20090501
  3. INNOHEP [Suspect]
     Dosage: REPORTED AS 10000IU, ANTI-XA/0.5ML
     Dates: start: 20000101
  4. CELLCEPT [Suspect]
     Indication: LIVER TRANSPLANT
     Dosage: THERAPY WAS STOPPED 6 WEEK OF AMENORRHEA
  5. CALTRATE [Suspect]
     Dates: end: 20090515
  6. PENTASA [Suspect]
     Dosage: DPSE: 1 CI ONCE DAILY
     Dates: start: 20090223, end: 20090515
  7. PROGRAFT [Suspect]
     Dosage: STARTED BEFORE PREGNANCY, FREQUENCY: DAILY
     Dates: end: 20090515

REACTIONS (1)
  - DYSMORPHISM [None]
